FAERS Safety Report 4877290-4 (Version None)
Quarter: 2006Q1

REPORT INFORMATION
  Report Type: 
  Country: None (occurrence: None)
  Receive Date: 20060111
  Receipt Date: 20040407
  Transmission Date: 20060701
  Serious: Yes (Hospitalization)
  Sender: FDA-Public Use
  Company Number: US-BRISTOL-MYERS SQUIBB COMPANY-12556239

PATIENT
  Age: 57 Year
  Sex: Female

DRUGS (3)
  1. CETUXIMAB [Suspect]
     Indication: OVARIAN CANCER
     Dosage: THIS DOSAGE WAS STARTED ON 25-FEB-04.  THE PT HAD REC'D 5 COURSES.
     Route: 042
     Dates: start: 20040324, end: 20040324
  2. CARBOPLATIN [Suspect]
     Indication: OVARIAN CANCER
     Dosage: INITIAL TX DATE: 25-FEB-04. PT HAD REC'D 2 COURSES
     Route: 042
     Dates: start: 20040317, end: 20040317
  3. PACLITAXEL [Suspect]
     Indication: OVARIAN CANCER
     Dosage: INITIAL TX DATE: 25-FEB-04.  PT REC'D 2 COURSES.
     Route: 042
     Dates: start: 20040317, end: 20040317

REACTIONS (1)
  - ABDOMINAL PAIN [None]
